FAERS Safety Report 6416797-5 (Version None)
Quarter: 2009Q4

REPORT INFORMATION
  Report Type: 
  Country: None (occurrence: None)
  Receive Date: 20091027
  Receipt Date: 20091020
  Transmission Date: 20100525
  Serious: Yes (Death)
  Sender: FDA-Public Use
  Company Number: JP-GENENTECH-292613

PATIENT
  Sex: Male

DRUGS (5)
  1. RITUXAN [Suspect]
     Indication: LYMPHOMA
     Route: 065
  2. CYCLOPHOSPHAMIDE [Concomitant]
     Indication: LYMPHOMA
  3. DOXORUBICIN HCL [Concomitant]
     Indication: LYMPHOMA
  4. VINCRISTINE SULFATE [Concomitant]
     Indication: LYMPHOMA
  5. PREDNISOLONE [Concomitant]
     Indication: LYMPHOMA

REACTIONS (1)
  - HEPATITIS B [None]
